FAERS Safety Report 9337042 (Version 2)
Quarter: 2013Q3

REPORT INFORMATION
  Report Type: Spontaneous
  Country: HR (occurrence: HR)
  Receive Date: 20130607
  Receipt Date: 20130911
  Transmission Date: 20140515
  Serious: Yes (Other)
  Sender: FDA-Public Use
  Company Number: HR-PFIZER INC-2013171113

PATIENT
  Age: 52 Year
  Sex: Female
  Weight: 90 kg

DRUGS (6)
  1. CONTROLOC [Suspect]
     Indication: PROPHYLAXIS
     Dosage: 20 MG, UNK
     Route: 048
     Dates: start: 200001, end: 20120310
  2. METHOTREXATE [Concomitant]
     Dosage: 12 MG, WEEKLY
     Dates: start: 201202
  3. SULFASALAZIN [Concomitant]
     Dosage: TWICE IN TWO DAYS
  4. DICLOFENAC [Concomitant]
     Dosage: UNK
  5. VENLAFAXINE [Concomitant]
     Dosage: UNK
  6. KVETIAPIN [Concomitant]
     Dosage: UNK

REACTIONS (3)
  - Gastric polyps [Recovered/Resolved]
  - Hiatus hernia [Unknown]
  - Gastrooesophageal reflux disease [Unknown]
